FAERS Safety Report 4697404-9 (Version None)
Quarter: 2005Q2

REPORT INFORMATION
  Report Type: 
  Country: None (occurrence: None)
  Receive Date: 20050621
  Receipt Date: 20050602
  Transmission Date: 20051028
  Serious: Yes (Death, Other)
  Sender: FDA-Public Use
  Company Number: USA050699538

PATIENT
  Age: 61 Year
  Sex: Female

DRUGS (1)
  1. HUMULIN 50/50 [Suspect]
     Dates: start: 19900101

REACTIONS (1)
  - RENAL CELL CARCINOMA STAGE UNSPECIFIED [None]
